FAERS Safety Report 7531517-9 (Version None)
Quarter: 2011Q2

REPORT INFORMATION
  Report Type: 
  Country: None (occurrence: None)
  Receive Date: 20110608
  Receipt Date: 20110525
  Transmission Date: 20111010
  Serious: Yes (Other)
  Sender: FDA-Public Use
  Company Number: PHHO2011DE09072

PATIENT
  Sex: Male
  Weight: 59.1 kg

DRUGS (3)
  1. CERTICAN [Suspect]
     Indication: RENAL TRANSPLANT
     Dosage: UNKNOWN
     Route: 048
     Dates: end: 20110524
  2. METHYLPREDNISOLONE [Concomitant]
  3. AEB071 [Suspect]
     Indication: RENAL TRANSPLANT
     Dosage: UNKNOWN
     Route: 048
     Dates: end: 20110524

REACTIONS (1)
  - NEPHROTIC SYNDROME [None]
